FAERS Safety Report 22527978 (Version 1)
Quarter: 2023Q2

REPORT INFORMATION
  Report Type: Spontaneous
  Country: US (occurrence: None)
  Receive Date: 20230606
  Receipt Date: 20230606
  Transmission Date: 20230721
  Serious: No
  Sender: FDA-Public Use
  Company Number: 2023A128889

PATIENT
  Sex: Male

DRUGS (2)
  1. SYMBICORT [Suspect]
     Active Substance: BUDESONIDE\FORMOTEROL FUMARATE DIHYDRATE
     Indication: Asthma
     Route: 055
  2. ALBUTEROL [Concomitant]
     Active Substance: ALBUTEROL

REACTIONS (6)
  - Device use issue [Unknown]
  - Cataract [Unknown]
  - Arthritis [Unknown]
  - Post-acute COVID-19 syndrome [Unknown]
  - Peak expiratory flow rate abnormal [Unknown]
  - Intentional device misuse [Unknown]
